FAERS Safety Report 24857407 (Version 2)
Quarter: 2025Q1

REPORT INFORMATION
  Report Type: Spontaneous
  Country: US (occurrence: US)
  Receive Date: 20250117
  Receipt Date: 20250218
  Transmission Date: 20250409
  Serious: Yes (Disabling, Other)
  Sender: UCB
  Company Number: US-UCBSA-2025001957

PATIENT
  Age: 26 Year
  Sex: Female

DRUGS (7)
  1. KEPPRA [Suspect]
     Active Substance: LEVETIRACETAM
     Indication: Seizure
     Dates: start: 202401
  2. VIMPAT [Suspect]
     Active Substance: LACOSAMIDE
     Indication: Seizure
  3. DEPAKOTE [Concomitant]
     Active Substance: DIVALPROEX SODIUM
     Indication: Seizure
  4. VERZENIO [Concomitant]
     Active Substance: ABEMACICLIB
     Indication: Product used for unknown indication
  5. DULCOLAX BALANCE [Concomitant]
     Active Substance: POLYETHYLENE GLYCOL 3350
     Indication: Product used for unknown indication
  6. DEXAMETHASONE [Concomitant]
     Active Substance: DEXAMETHASONE
     Indication: Product used for unknown indication
  7. TEMOZOLOMIDE [Concomitant]
     Active Substance: TEMOZOLOMIDE
     Indication: Product used for unknown indication

REACTIONS (5)
  - Brain operation [Not Recovered/Not Resolved]
  - Bedridden [Not Recovered/Not Resolved]
  - Agitation [Not Recovered/Not Resolved]
  - Discomfort [Not Recovered/Not Resolved]
  - Inability to afford medication [Unknown]

NARRATIVE: CASE EVENT DATE: 20240301
